FAERS Safety Report 21131419 (Version 2)
Quarter: 2023Q4

REPORT INFORMATION
  Report Type: Spontaneous
  Country: CN (occurrence: CN)
  Receive Date: 20220726
  Receipt Date: 20231006
  Transmission Date: 20240109
  Serious: Yes (Other)
  Sender: FDA-Public Use
  Company Number: CN-BAYER-2022A104417

PATIENT
  Age: 56 Year
  Sex: Male
  Weight: 53 kg

DRUGS (2)
  1. ULTRAVIST [Suspect]
     Active Substance: IOPROMIDE
     Indication: Scan with contrast
     Dosage: 80 ML, ONCE
     Route: 042
     Dates: start: 20220608, end: 20220608
  2. ULTRAVIST [Suspect]
     Active Substance: IOPROMIDE
     Indication: Gastrointestinal perforation

REACTIONS (2)
  - Rash pruritic [Recovering/Resolving]
  - Sensation of foreign body [Recovering/Resolving]

NARRATIVE: CASE EVENT DATE: 20220608
